FAERS Safety Report 26076171 (Version 1)
Quarter: 2025Q4

REPORT INFORMATION
  Report Type: Spontaneous
  Country: EG (occurrence: EG)
  Receive Date: 20251121
  Receipt Date: 20251121
  Transmission Date: 20260118
  Serious: Yes (Other)
  Sender: AMGEN
  Company Number: EG-AMGEN-EGYSP2025225537

PATIENT
  Weight: 90 kg

DRUGS (1)
  1. VECTIBIX [Suspect]
     Active Substance: PANITUMUMAB
     Indication: Product used for unknown indication
     Dosage: 800 MILLIGRAM
     Route: 065

REACTIONS (4)
  - Syncope [Unknown]
  - Overdose [Unknown]
  - Rash [Unknown]
  - Dizziness [Unknown]
